FAERS Safety Report 12413669 (Version 1)
Quarter: 2016Q2

REPORT INFORMATION
  Report Type: Spontaneous
  Country: JP (occurrence: JP)
  Receive Date: 20160527
  Receipt Date: 20160527
  Transmission Date: 20160815
  Serious: Yes (Death)
  Sender: FDA-Public Use
  Company Number: PHJP2000JP003659

PATIENT
  Age: 60 Year
  Sex: Male

DRUGS (2)
  1. SANDIMMUN [Suspect]
     Active Substance: CYCLOSPORINE
     Indication: PEMPHIGUS
     Route: 065
  2. ADRENAL CORTEX EXTRACT [Concomitant]
     Indication: PEMPHIGUS
     Route: 065

REACTIONS (1)
  - Pneumonia cytomegaloviral [Fatal]
